FAERS Safety Report 20420727 (Version 1)
Quarter: 2022Q1

REPORT INFORMATION
  Report Type: Spontaneous
  Country: US (occurrence: None)
  Receive Date: 20220202
  Receipt Date: 20220202
  Transmission Date: 20220423
  Serious: No
  Sender: FDA-Public Use
  Company Number: None

PATIENT
  Age: 84 Year
  Sex: Male

DRUGS (1)
  1. ZYTIGA [Suspect]
     Active Substance: ABIRATERONE ACETATE
     Indication: Prostate cancer
     Dosage: FREQUENCY : DAILY;?
     Route: 048
     Dates: start: 202001

REACTIONS (7)
  - Fatigue [None]
  - Bursa disorder [None]
  - Pain [None]
  - Bone neoplasm [None]
  - Fall [None]
  - Hand fracture [None]
  - Prostatic specific antigen increased [None]

NARRATIVE: CASE EVENT DATE: 20211115
